FAERS Safety Report 25416448 (Version 2)
Quarter: 2025Q2

REPORT INFORMATION
  Report Type: Spontaneous
  Country: US (occurrence: US)
  Receive Date: 20250610
  Receipt Date: 20250619
  Transmission Date: 20250716
  Serious: Yes (Other)
  Sender: TEVA
  Company Number: US-TEVA-VS-3204923

PATIENT
  Age: 58 Year
  Sex: Male

DRUGS (1)
  1. MIFEPRISTONE [Suspect]
     Active Substance: MIFEPRISTONE
     Indication: Small cell lung cancer
     Route: 048

REACTIONS (3)
  - Drug resistance [Unknown]
  - Off label use [Unknown]
  - Treatment noncompliance [Unknown]
